FAERS Safety Report 8235267-5 (Version None)
Quarter: 2012Q1

REPORT INFORMATION
  Report Type: 
  Country: None (occurrence: None)
  Receive Date: 20120326
  Receipt Date: 20120314
  Transmission Date: 20120608
  Serious: Yes (Hospitalization)
  Sender: FDA-Public Use
  Company Number: US-BRISTOL-MYERS SQUIBB COMPANY-16462749

PATIENT
  Age: 53 Year
  Sex: Male
  Weight: 109 kg

DRUGS (6)
  1. ASPIRIN [Suspect]
     Route: 048
  2. METFORMIN HCL [Suspect]
     Indication: TYPE 2 DIABETES MELLITUS
     Dosage: 1000MG EVERY MORNING 1500MG EVERY EVENING
     Route: 048
  3. TADALAFIL [Suspect]
     Route: 048
  4. SIMVASTATIN [Suspect]
     Route: 048
  5. LIRAGLUTIDE [Suspect]
     Dosage: INITIALLY 0.6 MG
     Route: 058
  6. GLIMEPIRIDE [Suspect]
     Route: 048

REACTIONS (1)
  - PANCREATITIS ACUTE [None]
